FAERS Safety Report 7860564-2 (Version None)
Quarter: 2011Q4

REPORT INFORMATION
  Report Type: 
  Country: None (occurrence: None)
  Receive Date: 20111027
  Receipt Date: 20111017
  Transmission Date: 20120403
  Serious: Yes (Hospitalization, Other)
  Sender: FDA-Public Use
  Company Number: US-BAYER-2011-009721

PATIENT
  Age: 29 Year
  Sex: Female
  Weight: 73.923 kg

DRUGS (5)
  1. MECLIZINE [Concomitant]
  2. YASMIN [Suspect]
     Indication: CONTRACEPTION
     Dosage: UNK
     Dates: start: 20050601, end: 20071001
  3. AMBIEN [Concomitant]
     Dosage: 10 MG, PRN
     Route: 048
  4. CIPROFLOXACIN [Concomitant]
     Indication: URINARY TRACT INFECTION
  5. VICODIN [Concomitant]

REACTIONS (5)
  - DIARRHOEA [None]
  - ABDOMINAL PAIN [None]
  - CHOLELITHIASIS [None]
  - NAUSEA [None]
  - CHOLECYSTITIS CHRONIC [None]
